FAERS Safety Report 9496770 (Version 1)
Quarter: 2013Q3

REPORT INFORMATION
  Report Type: Spontaneous
  Country: US (occurrence: US)
  Receive Date: 20130904
  Receipt Date: 20130904
  Transmission Date: 20140515
  Serious: Yes (Other)
  Sender: FDA-Public Use
  Company Number: US-PFIZER INC-2013253613

PATIENT
  Age: 33 Year
  Sex: Female
  Weight: 61.22 kg

DRUGS (2)
  1. LYRICA [Suspect]
     Indication: FIBROMYALGIA
     Dosage: 200 MG, 2X/DAY
     Route: 048
     Dates: end: 20130831
  2. LEVOTHYROXINE [Concomitant]
     Dosage: UNK

REACTIONS (7)
  - Cardiac flutter [Unknown]
  - Muscle spasms [Unknown]
  - Myalgia [Unknown]
  - Anxiety [Unknown]
  - Insomnia [Unknown]
  - Formication [Unknown]
  - Nausea [Unknown]
